FAERS Safety Report 19172865 (Version 1)
Quarter: 2021Q2

REPORT INFORMATION
  Report Type: Spontaneous
  Country: JP (occurrence: JP)
  Receive Date: 20210423
  Receipt Date: 20210423
  Transmission Date: 20210717
  Serious: Yes (Other)
  Sender: FDA-Public Use
  Company Number: JP-ACCORD-223451

PATIENT
  Age: 79 Year
  Sex: Male

DRUGS (10)
  1. ETOPOSIDE. [Suspect]
     Active Substance: ETOPOSIDE
     Indication: COLON ADENOMA
  2. RITUXIMAB. [Suspect]
     Active Substance: RITUXIMAB
     Indication: COLON ADENOMA
  3. ETOPOSIDE. [Suspect]
     Active Substance: ETOPOSIDE
     Indication: DIFFUSE LARGE B-CELL LYMPHOMA STAGE IV
  4. RITUXIMAB. [Suspect]
     Active Substance: RITUXIMAB
     Indication: DIFFUSE LARGE B-CELL LYMPHOMA STAGE IV
  5. VINCRISTINE [Suspect]
     Active Substance: VINCRISTINE
     Indication: COLON ADENOMA
  6. CYCLOPHOSPHAMIDE. [Suspect]
     Active Substance: CYCLOPHOSPHAMIDE
     Indication: DIFFUSE LARGE B-CELL LYMPHOMA STAGE IV
  7. CYCLOPHOSPHAMIDE/CYCLOPHOSPHAMIDE MONOHYDRATE [Suspect]
     Active Substance: CYCLOPHOSPHAMIDE
     Indication: COLON ADENOMA
  8. PREDNISOLONE. [Suspect]
     Active Substance: PREDNISOLONE
     Indication: COLON ADENOMA
  9. PREDNISOLONE. [Suspect]
     Active Substance: PREDNISOLONE
     Indication: DIFFUSE LARGE B-CELL LYMPHOMA STAGE IV
  10. VINCRISTINE [Suspect]
     Active Substance: VINCRISTINE
     Indication: DIFFUSE LARGE B-CELL LYMPHOMA STAGE IV

REACTIONS (3)
  - Febrile neutropenia [Recovered/Resolved]
  - Streptococcal bacteraemia [Recovered/Resolved]
  - Streptococcal sepsis [Recovered/Resolved]
